FAERS Safety Report 7232326-0 (Version None)
Quarter: 2011Q1

REPORT INFORMATION
  Report Type: 
  Country: None (occurrence: None)
  Receive Date: 20110106
  Receipt Date: 20101222
  Transmission Date: 20110831
  Serious: Yes (Hospitalization)
  Sender: FDA-Public Use
  Company Number: AUR-APL-2010-03270

PATIENT
  Age: 80 Year
  Sex: Female

DRUGS (3)
  1. UNKNOWN BETA BLOCKERS [Concomitant]
  2. METFORMIN HCL [Suspect]
     Indication: DIABETES MELLITUS
     Dosage: ORAL
     Route: 048
     Dates: end: 20101122
  3. UNKNOWN SARTANS [Concomitant]

REACTIONS (4)
  - RENAL FAILURE ACUTE [None]
  - DIALYSIS [None]
  - COMA [None]
  - LACTIC ACIDOSIS [None]
